FAERS Safety Report 21932534 (Version 2)
Quarter: 2025Q1

REPORT INFORMATION
  Report Type: Report from Study
  Country: US (occurrence: US)
  Receive Date: 20230131
  Receipt Date: 20250114
  Transmission Date: 20250408
  Serious: Yes (Other)
  Sender: TAKEDA
  Company Number: US-SHIRE-US201909794

PATIENT
  Sex: Female

DRUGS (2)
  1. HUMAN IMMUNOGLOBULIN G\HYALURONIDASE RECOMBINANT HUMAN [Suspect]
     Active Substance: HUMAN IMMUNOGLOBULIN G\HYALURONIDASE (HUMAN RECOMBINANT)
     Indication: Primary immunodeficiency syndrome
  2. HUMAN IMMUNOGLOBULIN G\HYALURONIDASE RECOMBINANT HUMAN [Suspect]
     Active Substance: HUMAN IMMUNOGLOBULIN G\HYALURONIDASE (HUMAN RECOMBINANT)
     Indication: Immunodeficiency common variable
     Dosage: 45 GRAM, MONTHLY

REACTIONS (9)
  - Upper respiratory tract infection [Unknown]
  - Diverticulitis [Unknown]
  - Pneumonia [Unknown]
  - Sinusitis [Unknown]
  - Influenza [Unknown]
  - Thyroid disorder [Unknown]
  - Tooth disorder [Unknown]
  - Asthma [Recovered/Resolved]
  - Fatigue [Unknown]
